APPROVED DRUG PRODUCT: SIMVASTATIN
Active Ingredient: SIMVASTATIN
Strength: 10MG
Dosage Form/Route: TABLET;ORAL
Application: A078103 | Product #001 | TE Code: AB
Applicant: LUPIN LTD
Approved: May 11, 2007 | RLD: No | RS: No | Type: RX